FAERS Safety Report 10380488 (Version 1)
Quarter: 2014Q3

REPORT INFORMATION
  Report Type: Spontaneous
  Country: US (occurrence: None)
  Receive Date: 20140812
  Receipt Date: 20140812
  Transmission Date: 20150326
  Serious: No
  Sender: FDA-Public Use
  Company Number: None

PATIENT
  Age: 31 Year
  Sex: Male
  Weight: 72.58 kg

DRUGS (1)
  1. COLAZAL [Suspect]
     Active Substance: BALSALAZIDE DISODIUM
     Indication: COLITIS ULCERATIVE
     Dosage: 3 CAPSULES THREE TIMES DAILY TAKEN BY MOUTH
     Route: 048
     Dates: start: 20130529, end: 20130628

REACTIONS (1)
  - Arthralgia [None]

NARRATIVE: CASE EVENT DATE: 20130628
